FAERS Safety Report 16575747 (Version 2)
Quarter: 2019Q3

REPORT INFORMATION
  Report Type: Report from Study
  Country: IL (occurrence: IL)
  Receive Date: 20190716
  Receipt Date: 20190718
  Transmission Date: 20191004
  Serious: Yes (Hospitalization)
  Sender: FDA-Public Use
  Company Number: IL-ACTELION-A-CH2019-192871

PATIENT
  Age: 57 Year
  Sex: Female

DRUGS (7)
  1. HYLO-COMOD [Concomitant]
     Active Substance: HYALURONATE SODIUM
  2. FORADIL [Concomitant]
     Active Substance: FORMOTEROL FUMARATE
  3. OMEPRADEX [Concomitant]
     Active Substance: OMEPRAZOLE
  4. MIFLONIDE [Concomitant]
     Active Substance: BUDESONIDE
  5. TADALAFIL. [Concomitant]
     Active Substance: TADALAFIL
     Dosage: UNK
     Dates: start: 20190701
  6. OPSUMIT [Suspect]
     Active Substance: MACITENTAN
     Indication: PULMONARY ARTERIAL HYPERTENSION
     Dosage: 10 MG, QD
     Route: 048
     Dates: start: 20190701, end: 20190712
  7. RELVAR [Concomitant]
     Active Substance: FLUTICASONE FUROATE\VILANTEROL TRIFENATATE

REACTIONS (9)
  - Concomitant disease aggravated [Recovering/Resolving]
  - Fluid retention [Unknown]
  - Rash [Recovered/Resolved]
  - Periorbital swelling [Recovering/Resolving]
  - Weight fluctuation [Unknown]
  - Oedema peripheral [Recovering/Resolving]
  - Uveitis [Recovering/Resolving]
  - Eye infection [Recovering/Resolving]
  - Secretion discharge [Recovering/Resolving]

NARRATIVE: CASE EVENT DATE: 20190701
